FAERS Safety Report 4799755-6 (Version None)
Quarter: 2005Q4

REPORT INFORMATION
  Report Type: 
  Country: None (occurrence: None)
  Receive Date: 20051012
  Receipt Date: 20051012
  Transmission Date: 20060501
  Serious: Yes (Hospitalization)
  Sender: FDA-Public Use
  Company Number: None

PATIENT
  Sex: Male
  Weight: 95.2554 kg

DRUGS (2)
  1. AMBIEN [Suspect]
     Dosage: PO (THERAPY DATES: PRIOR TO ADMISSION)
     Route: 048
  2. BENADRYL [Suspect]
     Dosage: PO (THERAPY DATES: PRIOR TO ADMISSION)
     Route: 048

REACTIONS (6)
  - CONFUSIONAL STATE [None]
  - DIZZINESS [None]
  - EXCORIATION [None]
  - FALL [None]
  - GAIT DISTURBANCE [None]
  - SOMNOLENCE [None]
